FAERS Safety Report 9006931 (Version 1)
Quarter: 2013Q1

REPORT INFORMATION
  Report Type: Spontaneous
  Country: US (occurrence: US)
  Receive Date: 20130110
  Receipt Date: 20130110
  Transmission Date: 20140127
  Serious: Yes (Death)
  Sender: FDA-Public Use
  Company Number: US-ASTRAZENECA-2013SE01662

PATIENT
  Age: 47 Year
  Sex: Female

DRUGS (6)
  1. QUETIAPINE [Suspect]
     Route: 048
  2. GABAPENTIN [Suspect]
     Route: 065
  3. BUPROPION [Suspect]
     Route: 065
  4. LORAZEPAM [Suspect]
     Route: 065
  5. SERTRALINE [Suspect]
     Route: 065
  6. OXCARBAZEPINE [Suspect]
     Route: 065

REACTIONS (2)
  - Completed suicide [Fatal]
  - Toxicity to various agents [Fatal]
